FAERS Safety Report 9767301 (Version 2)
Quarter: 2015Q2

REPORT INFORMATION
  Report Type: Spontaneous
  Country: US (occurrence: US)
  Receive Date: 20131217
  Receipt Date: 20150515
  Transmission Date: 20150821
  Serious: Yes (Life-Threatening, Congenital Anomaly, Other)
  Sender: FDA-Public Use
  Company Number: US-ELI_LILLY_AND_COMPANY-US201312003335

PATIENT

DRUGS (2)
  1. PROZAC [Suspect]
     Active Substance: FLUOXETINE HYDROCHLORIDE
     Indication: PRODUCT USED FOR UNKNOWN INDICATION
     Dosage: 1 DF, UNKNOWN
     Route: 064
  2. PRENATAL VITAMINS                  /08195401/ [Concomitant]

REACTIONS (6)
  - Congenital aortic valve incompetence [Unknown]
  - Pulmonary artery atresia [Unknown]
  - Premature baby [Unknown]
  - Oligohydramnios [Unknown]
  - Congenital arterial malformation [Unknown]
  - Foetal exposure timing unspecified [Recovered/Resolved]
